FAERS Safety Report 21605361 (Version 2)
Quarter: 2022Q4

REPORT INFORMATION
  Report Type: Spontaneous
  Country: JP (occurrence: JP)
  Receive Date: 20221116
  Receipt Date: 20221212
  Transmission Date: 20230112
  Serious: Yes (Death, Hospitalization)
  Sender: FDA-Public Use
  Company Number: JP-CHUGAI-2022041885

PATIENT
  Age: 45 Year
  Sex: Female
  Weight: 80.6 kg

DRUGS (6)
  1. AVASTIN [Suspect]
     Active Substance: BEVACIZUMAB
     Indication: Cervix carcinoma
     Dosage: 1150 MILLIGRAM, SINGLE
     Route: 041
     Dates: start: 20220916, end: 20220916
  2. CISPLATIN [Concomitant]
     Active Substance: CISPLATIN
     Indication: Cervix carcinoma
     Dosage: 90 MILLIGRAM, SINGLE
     Route: 041
     Dates: start: 20220916, end: 20220916
  3. TAXOL [Concomitant]
     Active Substance: PACLITAXEL
     Indication: Cervix carcinoma
     Dosage: 240 MILLIGRAM, SINGLE
     Route: 041
     Dates: start: 20220915, end: 20220915
  4. TRAMADOL [Concomitant]
     Active Substance: TRAMADOL
     Route: 048
  5. CALONAL [Concomitant]
     Active Substance: ACETAMINOPHEN
     Route: 048
  6. FLUTICASONE PROPIONATE\FORMOTEROL FUMARATE [Concomitant]
     Active Substance: FLUTICASONE PROPIONATE\FORMOTEROL FUMARATE
     Route: 055

REACTIONS (2)
  - Pulmonary embolism [Fatal]
  - Disease progression [Fatal]

NARRATIVE: CASE EVENT DATE: 20220923
